FAERS Safety Report 4421714-3 (Version None)
Quarter: 2004Q3

REPORT INFORMATION
  Report Type: 
  Country: None (occurrence: None)
  Receive Date: 20040806
  Receipt Date: 20040714
  Transmission Date: 20050211
  Serious: Yes (Hospitalization)
  Sender: FDA-Public Use
  Company Number: US_0407104091

PATIENT
  Age: 84 Year
  Sex: Female
  Weight: 65 kg

DRUGS (13)
  1. TERIPARATIDE [Suspect]
     Indication: OSTEOPOROSIS
     Dosage: 20 UG/1 DY
     Dates: start: 20040629
  2. RALOXIFENE HCL [Suspect]
     Indication: OSTEOPOROSIS
     Dosage: 60 MG/1 DAY
     Dates: start: 20040506
  3. ELAVIL [Concomitant]
  4. ASPIRIN [Concomitant]
  5. ATENOLOL [Concomitant]
  6. STOOL SOFTENER (DOCUSATE SODIUM) [Concomitant]
  7. MULTI-VITAMIN [Concomitant]
  8. HERBAL LAXATIVE [Concomitant]
  9. SUPER DRUG EXTRA POWER PAIN RELIEVER [Concomitant]
  10. NONI JUICE [Concomitant]
  11. CIDER VINEGAR [Concomitant]
  12. VITAMIN D [Concomitant]
  13. HYDROCHLOROTHIAZIDE [Concomitant]

REACTIONS (15)
  - ATELECTASIS [None]
  - BACTERIURIA [None]
  - BODY TEMPERATURE INCREASED [None]
  - CELLULITIS [None]
  - CHILLS [None]
  - CONFUSIONAL STATE [None]
  - ERYTHEMA [None]
  - MYALGIA [None]
  - OEDEMA PERIPHERAL [None]
  - PITTING OEDEMA [None]
  - PLEURAL EFFUSION [None]
  - PLEURAL FIBROSIS [None]
  - PULMONARY FIBROSIS [None]
  - TREATMENT NONCOMPLIANCE [None]
  - URINE ANALYSIS ABNORMAL [None]
